FAERS Safety Report 16932785 (Version 1)
Quarter: 2019Q4

REPORT INFORMATION
  Report Type: Report from Study
  Country: IT (occurrence: IT)
  Receive Date: 20191018
  Receipt Date: 20191018
  Transmission Date: 20200122
  Serious: Yes (Other)
  Sender: FDA-Public Use
  Company Number: IT-PFIZER INC-2019445040

PATIENT
  Age: 48 Year
  Sex: Male

DRUGS (1)
  1. ZITROMAX [Suspect]
     Active Substance: AZITHROMYCIN
     Indication: PHARYNGITIS
     Dosage: UNK

REACTIONS (4)
  - Dyspnoea [Unknown]
  - Throat tightness [Unknown]
  - Feeling hot [Unknown]
  - Palpitations [Unknown]

NARRATIVE: CASE EVENT DATE: 20190830
